FAERS Safety Report 4332413-0 (Version None)
Quarter: 2004Q2

REPORT INFORMATION
  Report Type: 
  Country: None (occurrence: None)
  Receive Date: 20040401
  Receipt Date: 20040323
  Transmission Date: 20050107
  Serious: Yes (Other)
  Sender: FDA-Public Use
  Company Number: 2004-03-1579

PATIENT
  Age: 28 Year
  Sex: Female

DRUGS (3)
  1. RINDERON (BETAMETHASONE SODIUM PHOSPHATE/ACETATE) INJECTABLE SUSPENSIO [Suspect]
     Indication: RHEUMATOID ARTHRITIS
     Dates: start: 20040305, end: 20040305
  2. LIDOCAINE HYDROCHLORIDE [Suspect]
     Indication: RHEUMATOID ARTHRITIS
     Dates: start: 20040305, end: 20040305
  3. PARIET (RABEPRAZOLE SODIUM) [Suspect]
     Dosage: ORAL
     Route: 048
     Dates: start: 20040220, end: 20040305

REACTIONS (1)
  - ANAPHYLACTOID REACTION [None]
